FAERS Safety Report 13375063 (Version 1)
Quarter: 2017Q1

REPORT INFORMATION
  Report Type: Not Available
  Country: US (occurrence: US)
  Receive Date: 20170327
  Receipt Date: 20170327
  Transmission Date: 20170429
  Serious: No
  Sender: FDA-Public Use
  Company Number: US-ANIPHARMA-2016-US-004307

PATIENT
  Age: 73 Year
  Sex: Female

DRUGS (2)
  1. PROPRANOLOL [Suspect]
     Active Substance: PROPRANOLOL HYDROCHLORIDE
     Dosage: 1 CAPSULE DAILY
     Route: 048
  2. PEPCID [Concomitant]
     Active Substance: FAMOTIDINE
     Dosage: UNKNOWN
     Route: 065

REACTIONS (2)
  - Drug ineffective [Not Recovered/Not Resolved]
  - Blood pressure increased [Not Recovered/Not Resolved]
